FAERS Safety Report 17747721 (Version 1)
Quarter: 2020Q2

REPORT INFORMATION
  Report Type: Spontaneous
  Country: DE (occurrence: DE)
  Receive Date: 20200505
  Receipt Date: 20200505
  Transmission Date: 20200714
  Serious: Yes (Hospitalization)
  Sender: FDA-Public Use
  Company Number: NVSC2020DE108046

PATIENT
  Age: 84 Year
  Sex: Female
  Weight: 57 kg

DRUGS (4)
  1. PEGFILGRASTIM [Suspect]
     Active Substance: PEGFILGRASTIM
     Indication: PRODUCT USED FOR UNKNOWN INDICATION
     Dosage: 6 MG, QD
     Route: 058
     Dates: start: 20191115
  2. CARBOPLATIN. [Concomitant]
     Active Substance: CARBOPLATIN
     Indication: OVARIAN CANCER
     Dosage: 400 MG, UNKNOWN
     Route: 042
     Dates: start: 20191024, end: 20191227
  3. PEGFILGRASTIM [Suspect]
     Active Substance: PEGFILGRASTIM
     Dosage: 6 MG, QD
     Route: 058
     Dates: start: 20191206
  4. PACLITAXEL. [Concomitant]
     Active Substance: PACLITAXEL
     Indication: OVARIAN CANCER
     Dosage: 290 MG
     Route: 042
     Dates: start: 20191024, end: 20191227

REACTIONS (2)
  - Vomiting [Recovered/Resolved]
  - Mechanical ileus [Recovered/Resolved]

NARRATIVE: CASE EVENT DATE: 20191231
